FAERS Safety Report 7786102-0 (Version None)
Quarter: 2011Q3

REPORT INFORMATION
  Report Type: 
  Country: None (occurrence: None)
  Receive Date: 20110929
  Receipt Date: 20110923
  Transmission Date: 20111222
  Serious: Yes (Hospitalization, Other)
  Sender: FDA-Public Use
  Company Number: US-AMGEN-USASP2011049342

PATIENT
  Age: 55 Year
  Sex: Male

DRUGS (3)
  1. ENBREL [Suspect]
     Indication: RHEUMATOID ARTHRITIS
     Dosage: 50 MG, QWK
     Dates: start: 20080805
  2. ENBREL [Suspect]
     Dosage: UNK
     Dates: start: 20100901
  3. CELEBREX [Concomitant]

REACTIONS (10)
  - PAIN IN EXTREMITY [None]
  - MYOCARDIAL INFARCTION [None]
  - MUSCULOSKELETAL STIFFNESS [None]
  - INJECTION SITE PAIN [None]
  - TESTICULAR ABSCESS [None]
  - URINARY TRACT INFECTION [None]
  - GASTROOESOPHAGEAL REFLUX DISEASE [None]
  - CHEST X-RAY ABNORMAL [None]
  - FATIGUE [None]
  - DRUG INEFFECTIVE [None]
